FAERS Safety Report 9899938 (Version 1)
Quarter: 2014Q1

REPORT INFORMATION
  Report Type: Not Available
  Country: US (occurrence: US)
  Receive Date: 20140214
  Receipt Date: 20140214
  Transmission Date: 20141002
  Serious: No
  Sender: FDA-Public Use
  Company Number: US-VIVUS-2013V1000826

PATIENT
  Age: 36 Year
  Sex: Female
  Weight: 154.36 kg

DRUGS (4)
  1. QSYMIA 7.5MG/46MG [Suspect]
     Indication: WEIGHT DECREASED
     Route: 048
  2. QSYMIA 7.5MG/46MG [Suspect]
     Route: 048
  3. QSYMIA 3.75MG/23MG [Suspect]
     Indication: WEIGHT DECREASED
     Route: 048
     Dates: start: 201309, end: 201309
  4. DEPO PROVERA [Concomitant]
     Indication: CONTRACEPTION

REACTIONS (2)
  - Dysgeusia [Unknown]
  - Drug dose omission [Recovered/Resolved]
